FAERS Safety Report 6247418-2 (Version None)
Quarter: 2009Q2

REPORT INFORMATION
  Report Type: 
  Country: None (occurrence: None)
  Receive Date: 20090624
  Receipt Date: 20090624
  Transmission Date: 20091009
  Serious: Yes (Hospitalization)
  Sender: FDA-Public Use
  Company Number: None

PATIENT
  Age: 84 Year
  Sex: Female

DRUGS (7)
  1. INTERFERON ALFA [Suspect]
     Indication: T-CELL LYMPHOMA
     Dosage: 3 MU SQ TWICE/WK
     Route: 058
     Dates: start: 20070905
  2. LABETALOL HCL [Concomitant]
  3. NIFEDIPINE [Concomitant]
  4. OSCAL [Concomitant]
  5. SIMVASTATIN [Concomitant]
  6. ALPRAZOLAM [Concomitant]
  7. M.V.I. [Concomitant]

REACTIONS (2)
  - ATRIAL FIBRILLATION [None]
  - THROMBOCYTOPENIA [None]
